FAERS Safety Report 4524898-1 (Version None)
Quarter: 2004Q4

REPORT INFORMATION
  Report Type: 
  Country: None (occurrence: None)
  Receive Date: 20041116
  Receipt Date: 20040816
  Transmission Date: 20050328
  Serious: No
  Sender: FDA-Public Use
  Company Number: S04-USA-06037-01

PATIENT
  Age: 85 Year
  Sex: Male

DRUGS (1)
  1. NAMENDA [Suspect]
     Indication: DEMENTIA ALZHEIMER'S TYPE
     Dosage: 5 MG QD PO
     Route: 048
     Dates: start: 20040808

REACTIONS (4)
  - DECREASED APPETITE [None]
  - GAIT DISTURBANCE [None]
  - LETHARGY [None]
  - WEIGHT DECREASED [None]
